FAERS Safety Report 8711862 (Version 2)
Quarter: 2012Q4

REPORT INFORMATION
  Report Type: 
  Country: US (occurrence: US)
  Receive Date: 20120807
  Receipt Date: 20121026
  Transmission Date: 20130627
  Serious: Yes (Other)
  Sender: FDA-Public Use
  Company Number: US-MILLENNIUM PHARMACEUTICALS, INC.-2012-05330

PATIENT
  Age: 54 Year
  Sex: Male

DRUGS (18)
  1. VELCADE [Suspect]
     Indication: TRANSPLANT REJECTION
     Dosage: 1.3 mg/m2, Cyclic
     Route: 040
     Dates: start: 20091023, end: 20091030
  2. METHYLPREDNISOLONE [Suspect]
     Indication: TRANSPLANT REJECTION
     Dosage: 100 mg, Cyclic
     Route: 042
  3. METHYLPREDNISOLONE [Suspect]
     Dosage: 50 mg, Cyclic
     Route: 042
  4. MYCOPHENOLATE MOFETIL [Concomitant]
     Indication: IMMUNOSUPPRESSION
     Dosage: 250 mg, bid
  5. TACROLIMUS [Concomitant]
     Indication: PRODUCT USED FOR UNKNOWN INDICATION
     Dosage: 3 mg, qd
  6. TACROLIMUS [Concomitant]
     Dosage: 4 mg, qd
  7. PREDNISONE [Concomitant]
     Indication: PRODUCT USED FOR UNKNOWN INDICATION
     Dosage: 10 mg, qd
  8. ACTOS                              /01460201/ [Concomitant]
     Indication: PRODUCT USED FOR UNKNOWN INDICATION
     Dosage: UNK
  9. GLIPIZIDE [Concomitant]
     Indication: PRODUCT USED FOR UNKNOWN INDICATION
  10. INSULIN [Concomitant]
     Indication: PRODUCT USED FOR UNKNOWN INDICATION
  11. GEMFIBROZIL [Concomitant]
     Indication: PRODUCT USED FOR UNKNOWN INDICATION
  12. VALCYTE [Concomitant]
     Indication: PRODUCT USED FOR UNKNOWN INDICATION
     Dosage: 225 mg, qd
  13. PENTAMIDINE [Concomitant]
     Indication: PRODUCT USED FOR UNKNOWN INDICATION
     Dosage: 300 mg, q4weeks
  14. AMLODIPINE [Concomitant]
     Indication: PRODUCT USED FOR UNKNOWN INDICATION
  15. ATENOLOL [Concomitant]
     Indication: PRODUCT USED FOR UNKNOWN INDICATION
  16. DOXAZOSIN [Concomitant]
     Indication: PRODUCT USED FOR UNKNOWN INDICATION
  17. MINOXIDIL [Concomitant]
     Indication: PRODUCT USED FOR UNKNOWN INDICATION
  18. ASPIRIN [Concomitant]
     Indication: PRODUCT USED FOR UNKNOWN INDICATION

REACTIONS (1)
  - Epstein-Barr virus infection [Unknown]
